FAERS Safety Report 7339498-8 (Version None)
Quarter: 2011Q1

REPORT INFORMATION
  Report Type: 
  Country: None (occurrence: None)
  Receive Date: 20110308
  Receipt Date: 20110125
  Transmission Date: 20110831
  Serious: No
  Sender: FDA-Public Use
  Company Number: US-AMGEN-USASP2011000835

PATIENT
  Age: 74 Year
  Sex: Female

DRUGS (1)
  1. PROLIA [Suspect]
     Indication: OSTEOPOROSIS POSTMENOPAUSAL
     Dates: start: 20110106

REACTIONS (5)
  - PIGMENTATION DISORDER [None]
  - DYSURIA [None]
  - DIZZINESS [None]
  - TOOTHACHE [None]
  - BACK PAIN [None]
